FAERS Safety Report 7450668-0 (Version None)
Quarter: 2011Q2

REPORT INFORMATION
  Report Type: 
  Country: None (occurrence: None)
  Receive Date: 20110429
  Receipt Date: 20110429
  Transmission Date: 20111010
  Serious: Yes (Life-Threatening, Hospitalization, Disabling, Other)
  Sender: FDA-Public Use
  Company Number: None

PATIENT
  Sex: Male
  Weight: 79.3795 kg

DRUGS (1)
  1. MULTIHANCE [Suspect]
     Indication: NUCLEAR MAGNETIC RESONANCE IMAGING
     Dosage: 20CC ONCE I.V.
     Route: 042
     Dates: start: 20100607

REACTIONS (19)
  - NEUROPATHY PERIPHERAL [None]
  - MUSCULOSKELETAL STIFFNESS [None]
  - AXILLARY PAIN [None]
  - MEDICAL DEVICE COMPLICATION [None]
  - CHILLS [None]
  - MEMORY IMPAIRMENT [None]
  - CHEST DISCOMFORT [None]
  - BONE PAIN [None]
  - ANXIETY [None]
  - TREMOR [None]
  - FEELING ABNORMAL [None]
  - ANAPHYLACTIC SHOCK [None]
  - MULTIPLE CHEMICAL SENSITIVITY [None]
  - STRESS [None]
  - FIBROSIS [None]
  - EXERCISE TOLERANCE DECREASED [None]
  - RENAL PAIN [None]
  - SKIN DISORDER [None]
  - FATIGUE [None]
